FAERS Safety Report 9492888 (Version 3)
Quarter: 2013Q3

REPORT INFORMATION
  Report Type: Spontaneous
  Country: BR (occurrence: BR)
  Receive Date: 20130901
  Receipt Date: 20130926
  Transmission Date: 20140515
  Serious: Yes (Death)
  Sender: FDA-Public Use
  Company Number: BR-PFIZER INC-2013142335

PATIENT
  Age: 33 Year
  Sex: Male
  Weight: 62 kg

DRUGS (2)
  1. SUTENT [Suspect]
     Indication: RENAL CANCER
     Dosage: 50 MG, CYCLIC 1 CAPSULE OF STRENGTH 50 MG, 1X/DAY (2 CYCLES)
     Route: 048
     Dates: start: 20130417
  2. SUTENT [Suspect]
     Dosage: 50 MG, CYCLIC 1X/DAY, FOR 4 WEEKS (CYCLE)

REACTIONS (7)
  - Disease progression [Fatal]
  - Renal cancer [Fatal]
  - Dry skin [Unknown]
  - Dysgeusia [Unknown]
  - Spinal pain [Unknown]
  - Somnolence [Unknown]
  - Pain [Unknown]
